FAERS Safety Report 5639579-0 (Version None)
Quarter: 2008Q1

REPORT INFORMATION
  Report Type: 
  Country: None (occurrence: None)
  Receive Date: 20080131
  Receipt Date: 20071113
  Transmission Date: 20080703
  Serious: Yes (Other)
  Sender: FDA-Public Use
  Company Number: 163-21880-07110753

PATIENT
  Age: 67 Year
  Sex: Female
  Weight: 92.5338 kg

DRUGS (4)
  1. REVLIMID [Suspect]
     Indication: MYELODYSPLASTIC SYNDROME
     Dosage: X21D/28 DAYS, ORAL
     Route: 048
     Dates: start: 20071012, end: 20071101
  2. REVLIMID [Suspect]
     Indication: MYELODYSPLASTIC SYNDROME
     Dosage: X21D/28 DAYS, ORAL
     Route: 048
     Dates: start: 20071101
  3. FUROSEMIDE [Concomitant]
  4. GLUCOTROL [Concomitant]

REACTIONS (4)
  - HAEMOGLOBIN DECREASED [None]
  - OEDEMA PERIPHERAL [None]
  - PAIN [None]
  - PAIN IN EXTREMITY [None]
